FAERS Safety Report 10932735 (Version 1)
Quarter: 2015Q1

REPORT INFORMATION
  Report Type: Spontaneous
  Country: US (occurrence: None)
  Receive Date: 20150319
  Receipt Date: 20150319
  Transmission Date: 20150721
  Serious: No
  Sender: FDA-Public Use
  Company Number: None

PATIENT
  Age: 72 Year
  Sex: Female
  Weight: 80.74 kg

DRUGS (15)
  1. PREDNISONE. [Concomitant]
     Active Substance: PREDNISONE
  2. ZOLPIDEM TARTRATE 10 MG TABLET [Suspect]
     Active Substance: ZOLPIDEM TARTRATE
     Indication: FIBROMYALGIA
     Route: 048
     Dates: start: 2008
  3. MILK THISTLE [Concomitant]
     Active Substance: MILK THISTLE
  4. HYDRALAZINE [Concomitant]
     Active Substance: HYDRALAZINE HYDROCHLORIDE
  5. VITAMIN D [Concomitant]
     Active Substance: CHOLECALCIFEROL
  6. LOSARTAN [Concomitant]
     Active Substance: LOSARTAN
  7. OXYBUTYNIN [Concomitant]
     Active Substance: OXYBUTYNIN
  8. SYNTHROID [Concomitant]
     Active Substance: LEVOTHYROXINE SODIUM
  9. CYTOMEL [Concomitant]
     Active Substance: LIOTHYRONINE SODIUM
  10. IRON [Concomitant]
     Active Substance: IRON
  11. CITRACAL [Concomitant]
     Active Substance: CALCIUM CITRATE
  12. OMEPRAZOLE. [Concomitant]
     Active Substance: OMEPRAZOLE
  13. ALENDRONATE [Concomitant]
     Active Substance: ALENDRONATE SODIUM
  14. COQ10 [Concomitant]
     Active Substance: UBIDECARENONE
  15. ZOLPIDEM TARTRATE 10 MG TABLET [Suspect]
     Active Substance: ZOLPIDEM TARTRATE
     Indication: INSOMNIA
     Route: 048
     Dates: start: 2008

REACTIONS (3)
  - Sleep disorder [None]
  - Product quality issue [None]
  - Middle insomnia [None]

NARRATIVE: CASE EVENT DATE: 20150306
